FAERS Safety Report 11422641 (Version 1)
Quarter: 2015Q3

REPORT INFORMATION
  Report Type: Spontaneous
  Country: US (occurrence: None)
  Receive Date: 20150826
  Receipt Date: 20150826
  Transmission Date: 20151125
  Serious: Yes (Life-Threatening)
  Sender: FDA-Public Use
  Company Number: None

PATIENT
  Age: 47 Year
  Sex: Male
  Weight: 104.33 kg

DRUGS (3)
  1. ZOLOFT [Concomitant]
     Active Substance: SERTRALINE HYDROCHLORIDE
  2. DEPAKOTE [Concomitant]
     Active Substance: DIVALPROEX SODIUM
  3. RISPERDAL CONSTA [Suspect]
     Active Substance: RISPERIDONE
     Indication: MENTAL DISORDER
     Route: 048

REACTIONS (10)
  - Erectile dysfunction [None]
  - Loss of libido [None]
  - Drug withdrawal syndrome [None]
  - Feeling abnormal [None]
  - Gynaecomastia [None]
  - Panic attack [None]
  - Dyskinesia [None]
  - Sleep disorder [None]
  - Memory impairment [None]
  - Anhedonia [None]
